FAERS Safety Report 4430308-5 (Version None)
Quarter: 2004Q3

REPORT INFORMATION
  Report Type: 
  Country: None (occurrence: None)
  Receive Date: 20040816
  Receipt Date: 20040730
  Transmission Date: 20050211
  Serious: Yes (Other)
  Sender: FDA-Public Use
  Company Number: DSA_24801_2004

PATIENT
  Age: 58 Year
  Sex: Male

DRUGS (4)
  1. RENIVACE [Suspect]
     Indication: HYPERTENSION
     Dosage: 1.25 MG Q DAY PO
     Route: 048
     Dates: start: 20040707, end: 20040722
  2. NORVASC [Concomitant]
  3. BUFFERIN [Concomitant]
  4. SELBEX [Concomitant]

REACTIONS (10)
  - ALANINE AMINOTRANSFERASE INCREASED [None]
  - ASPARTATE AMINOTRANSFERASE INCREASED [None]
  - BETA GLOBULIN INCREASED [None]
  - BLOOD GLUCOSE INCREASED [None]
  - BLOOD LACTATE DEHYDROGENASE INCREASED [None]
  - BLOOD TRIGLYCERIDES INCREASED [None]
  - CONDITION AGGRAVATED [None]
  - GAMMA-GLUTAMYLTRANSFERASE INCREASED [None]
  - HEPATIC FUNCTION ABNORMAL [None]
  - PLATELET COUNT DECREASED [None]
